FAERS Safety Report 10992303 (Version 2)
Quarter: 2015Q2

REPORT INFORMATION
  Report Type: Spontaneous
  Country: US (occurrence: US)
  Receive Date: 20150406
  Receipt Date: 20150525
  Transmission Date: 20150821
  Serious: No
  Sender: FDA-Public Use
  Company Number: US-JNJFOC-20130916783

PATIENT
  Sex: Female
  Weight: 61.24 kg

DRUGS (3)
  1. REMICADE [Suspect]
     Active Substance: INFLIXIMAB
     Indication: ANKYLOSING SPONDYLITIS
     Route: 042
     Dates: start: 2013, end: 201308
  2. MUTIVITAMINS [Concomitant]
     Indication: VITAMIN SUPPLEMENTATION
     Route: 048
     Dates: start: 2010
  3. REMICADE [Suspect]
     Active Substance: INFLIXIMAB
     Indication: ANKYLOSING SPONDYLITIS
     Dosage: LOADING DOSES OF 0,2 AND 4 WEEKS.
     Route: 042
     Dates: start: 201306

REACTIONS (17)
  - Muscle spasms [Recovered/Resolved]
  - Chills [Recovered/Resolved]
  - Nausea [Recovered/Resolved]
  - Nystagmus [Not Recovered/Not Resolved]
  - Dyspnoea [Recovered/Resolved]
  - Breast enlargement [Recovered/Resolved]
  - Burning sensation [Recovered/Resolved]
  - Menorrhagia [Recovered/Resolved]
  - Vision blurred [Recovered/Resolved]
  - Ankylosing spondylitis [Not Recovered/Not Resolved]
  - Breast pain [Recovered/Resolved]
  - Infusion related reaction [Unknown]
  - Blindness transient [Recovered/Resolved]
  - Hyperhidrosis [Recovered/Resolved]
  - Polymenorrhoea [Recovered/Resolved]
  - Hypotension [Unknown]
  - Feeling cold [Recovered/Resolved]

NARRATIVE: CASE EVENT DATE: 2013
